FAERS Safety Report 8188968-1 (Version None)
Quarter: 2012Q1

REPORT INFORMATION
  Report Type: 
  Country: None (occurrence: None)
  Receive Date: 20120306
  Receipt Date: 20120301
  Transmission Date: 20120608
  Serious: Yes (Life-Threatening, Hospitalization)
  Sender: FDA-Public Use
  Company Number: PHHY2012CH018214

PATIENT
  Age: 74 Year
  Sex: Male

DRUGS (7)
  1. DIAMICRON [Suspect]
     Indication: TYPE 2 DIABETES MELLITUS
     Dosage: 60 MG, DAILY
     Route: 048
  2. STARLIX [Suspect]
     Indication: TYPE 2 DIABETES MELLITUS
     Dosage: 60 MG, DAILY
     Route: 048
  3. AMOXICILLIN AND CLAVULANATE POTASSIUM [Suspect]
     Indication: BRONCHITIS
     Dosage: 1250 MG, UNK
     Route: 048
     Dates: start: 20111231
  4. TRAMADOL HYDROCHLORIDE [Concomitant]
     Indication: ARTHRALGIA
     Dosage: 50 MG, UNK
     Route: 048
     Dates: start: 20111231
  5. VOLTAREN [Suspect]
     Indication: ARTHRALGIA
     Dosage: 1 DF, ONCE/SINGLE
     Route: 048
     Dates: start: 20111231
  6. IRBESARTAN + HYDROCHLOROTHIAZIDE [Suspect]
     Indication: ESSENTIAL HYPERTENSION
     Dosage: 150 MG, DAILY (CONCENTRATION: 150/12.5)
     Route: 048
     Dates: start: 20111201
  7. METFORMIN HCL [Concomitant]
     Indication: TYPE 2 DIABETES MELLITUS
     Dosage: 3 MG, DAILY
     Route: 048

REACTIONS (7)
  - LOSS OF CONSCIOUSNESS [None]
  - METABOLIC ACIDOSIS [None]
  - HAEMATURIA [None]
  - HYPOGLYCAEMIC COMA [None]
  - DECREASED APPETITE [None]
  - RENAL FAILURE ACUTE [None]
  - MALAISE [None]
